FAERS Safety Report 4628578-3 (Version None)
Quarter: 2005Q2

REPORT INFORMATION
  Report Type: 
  Country: None (occurrence: None)
  Receive Date: 20050404
  Receipt Date: 20050321
  Transmission Date: 20051028
  Serious: Yes (Hospitalization)
  Sender: FDA-Public Use
  Company Number: DEU-2004-0001148

PATIENT
  Age: 51 Year
  Sex: Male

DRUGS (9)
  1. HYDROMORPHONE HCL [Suspect]
     Indication: PAIN
     Dosage: 32 MG, BID, ORAL
     Route: 048
     Dates: start: 20040910
  2. HYDROMORPHONE HYDROCHLORIDE [Suspect]
     Indication: PAIN
     Dosage: 2.6 MG, PRN, ORAL
  3. MOVICOL (MACROGOL, SODIUM CHLORIDE, POTASSIUM CHLORIDE, SODIUM BICARBO [Concomitant]
  4. FLUOVOXAMINE MALEATE (FLUVOXAMINE MALEATE) [Concomitant]
  5. PANTOPRAZOLE SODIUM [Concomitant]
  6. METAMIZOLE SODIUM [Concomitant]
  7. OMEP (OMEPRAZOLE) [Concomitant]
  8. VIOXX [Concomitant]
  9. VOLTAREN DISPERS ^GEIGY^ (DICLOFENAC) [Concomitant]

REACTIONS (3)
  - BREAST PAIN [None]
  - DYSPNOEA [None]
  - GYNAECOMASTIA [None]
